FAERS Safety Report 9283761 (Version 2)
Quarter: 2014Q1

REPORT INFORMATION
  Report Type: Spontaneous
  Country: US (occurrence: US)
  Receive Date: 20130510
  Receipt Date: 20140324
  Transmission Date: 20141002
  Serious: Yes (Death, Hospitalization)
  Sender: FDA-Public Use
  Company Number: US-B.I. PHARMACEUTICALS,INC./RIDGEFIELD-2013-BI-13166BP

PATIENT
  Sex: Female
  Weight: 49.9 kg

DRUGS (4)
  1. PRADAXA [Suspect]
     Indication: ATRIAL FIBRILLATION
     Route: 065
     Dates: start: 201110
  2. MEFIPIDINE [Concomitant]
     Route: 065
     Dates: start: 1990, end: 2011
  3. TOPROL [Concomitant]
     Route: 065
     Dates: start: 1990, end: 2011
  4. XAYLATAN [Concomitant]
     Route: 065
     Dates: start: 2000, end: 2011

REACTIONS (5)
  - Cerebral haemorrhage [Fatal]
  - Gastrointestinal haemorrhage [Fatal]
  - Ulcer haemorrhage [Fatal]
  - Haemorrhage [Fatal]
  - Epistaxis [Unknown]
